FAERS Safety Report 20014159 (Version 1)
Quarter: 2021Q4

REPORT INFORMATION
  Report Type: Spontaneous
  Country: US (occurrence: US)
  Receive Date: 20211029
  Receipt Date: 20211029
  Transmission Date: 20220303
  Serious: Yes (Hospitalization, Other)
  Sender: FDA-Public Use
  Company Number: US-ALVOGEN-2021-ALVOGEN-117695

PATIENT
  Age: 47 Year
  Sex: Female

DRUGS (2)
  1. DEXAMETHASONE [Suspect]
     Active Substance: DEXAMETHASONE
     Indication: Astrocytoma, low grade
     Dosage: TWICE DAILY FOR 14 DAYS
  2. HYDROCORTISONE [Suspect]
     Active Substance: HYDROCORTISONE
     Indication: Astrocytoma, low grade
     Dosage: EVERY MORNING

REACTIONS (6)
  - Irritability [Unknown]
  - Increased appetite [Unknown]
  - Weight increased [Unknown]
  - Mania [Unknown]
  - Adrenal insufficiency [Recovering/Resolving]
  - Osteonecrosis [Unknown]
